FAERS Safety Report 8965450 (Version 2)
Quarter: 2013Q1

REPORT INFORMATION
  Report Type: Report from Study
  Country: FR (occurrence: FR)
  Receive Date: 20121213
  Receipt Date: 20130205
  Transmission Date: 20140127
  Serious: Yes (Hospitalization)
  Sender: FDA-Public Use
  Company Number: FR-ROCHE-1166953

PATIENT
  Sex: Male
  Weight: 75.2 kg

DRUGS (4)
  1. MYCOPHENOLATE MOFETIL [Suspect]
     Indication: RENAL TRANSPLANT
     Route: 048
     Dates: start: 20120807
  2. EVEROLIMUS [Suspect]
     Indication: RENAL TRANSPLANT
     Route: 048
     Dates: start: 20120918, end: 20121129
  3. SOLUPRED (FRANCE) [Suspect]
     Indication: RENAL TRANSPLANT
     Route: 048
     Dates: start: 20120807
  4. PROGRAF [Concomitant]
     Indication: RENAL TRANSPLANT
     Route: 065
     Dates: start: 20121129

REACTIONS (2)
  - Transplant rejection [Recovered/Resolved]
  - Transplant rejection [Recovered/Resolved]
